FAERS Safety Report 18040181 (Version 1)
Quarter: 2020Q3

REPORT INFORMATION
  Report Type: Spontaneous
  Country: US (occurrence: US)
  Receive Date: 20200717
  Receipt Date: 20200717
  Transmission Date: 20201103
  Serious: No
  Sender: FDA-Public Use
  Company Number: US-PFIZER INC-2020271191

PATIENT
  Age: 51 Year
  Sex: Female
  Weight: 58.97 kg

DRUGS (3)
  1. CLINDAMYCIN HCL [Suspect]
     Active Substance: CLINDAMYCIN HYDROCHLORIDE
     Indication: TOOTH INFECTION
  2. CLINDAMYCIN HCL [Suspect]
     Active Substance: CLINDAMYCIN HYDROCHLORIDE
     Indication: ORAL INFECTION
     Dosage: 300 MG
     Dates: start: 201806
  3. CLINDAMYCIN HCL [Suspect]
     Active Substance: CLINDAMYCIN HYDROCHLORIDE
     Indication: OSTEOMYELITIS

REACTIONS (9)
  - Neoplasm [Unknown]
  - Drug ineffective [Unknown]
  - Dyspnoea [Recovered/Resolved]
  - Eye irritation [Unknown]
  - Oral disorder [Unknown]
  - Throat tightness [Unknown]
  - Lacrimation increased [Unknown]
  - Musculoskeletal stiffness [Unknown]
  - Throat irritation [Unknown]

NARRATIVE: CASE EVENT DATE: 201806
